FAERS Safety Report 5325236-7 (Version None)
Quarter: 2007Q2

REPORT INFORMATION
  Report Type: 
  Country: None (occurrence: None)
  Receive Date: 20070515
  Receipt Date: 20070514
  Transmission Date: 20071010
  Serious: Yes (Disabling, Other)
  Sender: FDA-Public Use
  Company Number: GB-BRISTOL-MYERS SQUIBB COMPANY-13779277

PATIENT
  Age: 69 Year
  Sex: Female

DRUGS (4)
  1. ARIPIPRAZOLE [Suspect]
     Indication: DEMENTIA ALZHEIMER'S TYPE
     Dosage: DOSE REDUCED TO 5 MG/DAY
     Route: 048
     Dates: start: 20060801
  2. ARICEPT [Interacting]
     Indication: DEMENTIA ALZHEIMER'S TYPE
     Route: 048
  3. ATENOLOL [Concomitant]
  4. LACTULOSE [Concomitant]

REACTIONS (5)
  - DRUG INTERACTION [None]
  - DYSKINESIA [None]
  - DYSTONIA [None]
  - HEART RATE DECREASED [None]
  - TRISMUS [None]
